FAERS Safety Report 25185937 (Version 5)
Quarter: 2025Q3

REPORT INFORMATION
  Report Type: Spontaneous
  Country: US (occurrence: US)
  Receive Date: 20250410
  Receipt Date: 20250731
  Transmission Date: 20251020
  Serious: Yes (Other)
  Sender: MERCK SHARP & DOHME LLC
  Company Number: US-009507513-2266383

PATIENT
  Sex: Female

DRUGS (25)
  1. WINREVAIR [Suspect]
     Active Substance: SOTATERCEPT-CSRK
     Indication: Pulmonary arterial hypertension
     Route: 058
     Dates: start: 20241015, end: 20250521
  2. WINREVAIR [Suspect]
     Active Substance: SOTATERCEPT-CSRK
  3. WINREVAIR [Suspect]
     Active Substance: SOTATERCEPT-CSRK
  4. WINREVAIR [Suspect]
     Active Substance: SOTATERCEPT-CSRK
  5. TYVASO DPI [Suspect]
     Active Substance: TREPROSTINIL
     Indication: Pulmonary arterial hypertension
     Route: 055
     Dates: start: 20230301
  6. TYVASO DPI [Suspect]
     Active Substance: TREPROSTINIL
     Indication: Pulmonary arterial hypertension
     Dosage: 48 UG, 4 TIMES A DAY
     Route: 055
  7. FAMOTIDINE [Concomitant]
     Active Substance: FAMOTIDINE
  8. VITAMIN D3 [Concomitant]
     Active Substance: CHOLECALCIFEROL
  9. POTASSIUM CHLORIDE [Concomitant]
     Active Substance: POTASSIUM CHLORIDE
  10. RUXIENCE [Concomitant]
     Active Substance: RITUXIMAB-PVVR
  11. BIOTIN [Concomitant]
     Active Substance: BIOTIN
  12. LASIX [Concomitant]
     Active Substance: FUROSEMIDE
  13. PROTONIX [Concomitant]
     Active Substance: PANTOPRAZOLE SODIUM
  14. ALLOPURINOL [Concomitant]
     Active Substance: ALLOPURINOL
  15. HYDROXYCHLOROQUINE SULFATE [Concomitant]
     Active Substance: HYDROXYCHLOROQUINE SULFATE
  16. Flonase allergy relief (Fluticasone propionate) [Concomitant]
  17. URSODIOL [Concomitant]
     Active Substance: URSODIOL
  18. CALCITRIOL [Concomitant]
     Active Substance: CALCITRIOL
  19. OPSUMIT [Concomitant]
     Active Substance: MACITENTAN
  20. MELATONIN [Concomitant]
     Active Substance: MELATONIN
  21. GABAPENTIN [Concomitant]
     Active Substance: GABAPENTIN
  22. SODIUM BICARBONATE [Concomitant]
     Active Substance: SODIUM BICARBONATE
  23. ONDANSETRON [Concomitant]
     Active Substance: ONDANSETRON
  24. ADEMPAS [Concomitant]
     Active Substance: RIOCIGUAT
  25. METHOCARBAMOL [Concomitant]
     Active Substance: METHOCARBAMOL

REACTIONS (9)
  - Pulmonary thrombosis [Recovering/Resolving]
  - Product dose omission issue [Unknown]
  - Pericardial effusion [Not Recovered/Not Resolved]
  - Condition aggravated [Recovered/Resolved]
  - Dyspnoea [Recovering/Resolving]
  - Feeling abnormal [Recovering/Resolving]
  - Gait disturbance [Recovering/Resolving]
  - Dizziness [Not Recovered/Not Resolved]
  - Fatigue [Unknown]

NARRATIVE: CASE EVENT DATE: 20250101
